FAERS Safety Report 5279018-5 (Version None)
Quarter: 2007Q1

REPORT INFORMATION
  Report Type: 
  Country: None (occurrence: None)
  Receive Date: 20070328
  Receipt Date: 20070116
  Transmission Date: 20070707
  Serious: No
  Sender: FDA-Public Use
  Company Number: US-AMGEN-KDL207145

PATIENT
  Sex: Female

DRUGS (4)
  1. NEULASTA [Suspect]
     Indication: CHEMOTHERAPY
     Route: 058
     Dates: start: 20061020
  2. CYCLOPHOSPHAMIDE [Concomitant]
  3. DOXORUBICIN HYDROCHLORIDE [Concomitant]
  4. DOCETAXEL [Concomitant]

REACTIONS (5)
  - BONE PAIN [None]
  - CHILLS [None]
  - INFLUENZA LIKE ILLNESS [None]
  - PAIN [None]
  - PYREXIA [None]
